FAERS Safety Report 22339745 (Version 5)
Quarter: 2024Q1

REPORT INFORMATION
  Report Type: Spontaneous
  Country: US (occurrence: US)
  Receive Date: 20230518
  Receipt Date: 20240313
  Transmission Date: 20240409
  Serious: No
  Sender: FDA-Public Use
  Company Number: US-PFIZER INC-PV202300086191

PATIENT
  Age: 4 Year
  Sex: Male
  Weight: 19.048 kg

DRUGS (3)
  1. OXBRYTA [Suspect]
     Active Substance: VOXELOTOR
     Indication: Sickle cell disease
     Dosage: 300 MG
  2. OXBRYTA [Suspect]
     Active Substance: VOXELOTOR
     Dosage: 600 MG, 1X/DAY
     Dates: start: 20230313
  3. OXBRYTA [Suspect]
     Active Substance: VOXELOTOR
     Dosage: 300MG ORAL SUSPENION 2 TABLET ONCE DAILY, ORALLY
     Route: 048
     Dates: start: 202303

REACTIONS (3)
  - Haemoglobin decreased [Unknown]
  - Oral discomfort [Recovered/Resolved]
  - Nasopharyngitis [Unknown]

NARRATIVE: CASE EVENT DATE: 20230320
